FAERS Safety Report 6038129-7 (Version None)
Quarter: 2009Q1

REPORT INFORMATION
  Report Type: 
  Country: None (occurrence: None)
  Receive Date: 20090113
  Receipt Date: 20090113
  Transmission Date: 20090719
  Serious: Yes (Hospitalization)
  Sender: FDA-Public Use
  Company Number: None

PATIENT
  Age: 79 Year
  Sex: Female
  Weight: 68 kg

DRUGS (9)
  1. SIMVASTATIN [Suspect]
     Indication: HYPERCHOLESTEROLAEMIA
     Dosage: 40 MG DAILY PO, PRIOR TO ADMISSION
     Route: 048
  2. LIDODERM [Concomitant]
  3. DONEPEZIL HCL [Concomitant]
  4. MEMANTINE HCL [Concomitant]
  5. CLONAZEPAM [Concomitant]
  6. CITALOPRAM [Concomitant]
  7. METFORMIN [Concomitant]
  8. OMEPRAZOLE [Concomitant]
  9. SLIDING SCALE INSULIN WITH REGULAR INSULIN [Concomitant]

REACTIONS (2)
  - RHABDOMYOLYSIS [None]
  - URINARY TRACT INFECTION [None]
